FAERS Safety Report 10497975 (Version 1)
Quarter: 2014Q4

REPORT INFORMATION
  Report Type: Report from Study
  Country: AU (occurrence: AU)
  Receive Date: 20141006
  Receipt Date: 20141006
  Transmission Date: 20150528
  Serious: Yes (Other)
  Sender: FDA-Public Use
  Company Number: AU-SA-2014SA134896

PATIENT
  Age: 60 Year
  Sex: Male

DRUGS (1)
  1. LANTUS [Suspect]
     Active Substance: INSULIN GLARGINE
     Dosage: DOSE:105 UNIT(S)
     Route: 065
     Dates: start: 20120303

REACTIONS (5)
  - Tremor [Not Recovered/Not Resolved]
  - Memory impairment [Not Recovered/Not Resolved]
  - Drug administration error [Unknown]
  - Coronary arterial stent insertion [Not Recovered/Not Resolved]
  - Muscle spasms [Not Recovered/Not Resolved]
